FAERS Safety Report 6818819-6 (Version None)
Quarter: 2010Q2

REPORT INFORMATION
  Report Type: 
  Country: None (occurrence: None)
  Receive Date: 20100630
  Receipt Date: 20100601
  Transmission Date: 20101027
  Serious: Yes (Hospitalization)
  Sender: FDA-Public Use
  Company Number: MC200900407

PATIENT
  Age: 66 Year
  Sex: Male
  Weight: 80 kg

DRUGS (18)
  1. ANGIOMAX [Suspect]
     Indication: PERCUTANEOUS CORONARY INTERVENTION
     Dosage: 12 ML BOLUS, IV BOLUS; 28 ML, HR, INTRAVENOUS; 4 ML, HR, INTRAVENOUS
     Dates: start: 20090906, end: 20090906
  2. RAMIPRIL [Concomitant]
  3. RAMIPRIL [Concomitant]
  4. SIMVASTATIN [Concomitant]
  5. DIGITOXIN INJ [Concomitant]
  6. EBRANTIL (URAPIDIL) [Concomitant]
  7. ENOXAPARIN SODIUM [Concomitant]
  8. METOPROLOL TARTRATE [Concomitant]
  9. EPLERENONE (EPLERENONE) [Concomitant]
  10. AMIODARON (AMIODARONE HYDROCHLORIDE) [Concomitant]
  11. BISOPROLOL (BISOPROLOL HEMIFUMARATE) [Concomitant]
  12. MOXONIDIN (MOXONIDINE) [Concomitant]
  13. LERCANIDIPINE [Concomitant]
  14. CLOPIDOGREL [Concomitant]
  15. ASPIRIN [Concomitant]
  16. TORSEMIDE [Concomitant]
  17. MIDAZOLAM HCL [Concomitant]
  18. ETOMIDATE [Concomitant]

REACTIONS (1)
  - VASCULAR PSEUDOANEURYSM [None]
